FAERS Safety Report 25685539 (Version 4)
Quarter: 2025Q4

REPORT INFORMATION
  Report Type: Spontaneous
  Country: US (occurrence: US)
  Receive Date: 20250815
  Receipt Date: 20251006
  Transmission Date: 20260117
  Serious: No
  Sender: PFIZER
  Company Number: US-PFIZER INC-PV202500097223

PATIENT
  Age: 23 Year

DRUGS (1)
  1. MEDROXYPROGESTERONE ACETATE [Suspect]
     Active Substance: MEDROXYPROGESTERONE ACETATE
     Indication: Endometriosis
     Dosage: UNK

REACTIONS (3)
  - Device delivery system issue [Unknown]
  - Drug dose omission by device [Unknown]
  - Off label use [Unknown]

NARRATIVE: CASE EVENT DATE: 20250809
